FAERS Safety Report 9925656 (Version 1)
Quarter: 2014Q1

REPORT INFORMATION
  Report Type: Spontaneous
  Country: US (occurrence: US)
  Receive Date: 20140226
  Receipt Date: 20140226
  Transmission Date: 20141002
  Serious: Yes (Hospitalization, Other)
  Sender: FDA-Public Use
  Company Number: US-009507513-1402USA012058

PATIENT
  Sex: Female

DRUGS (1)
  1. ISENTRESS [Suspect]
     Dosage: UNK
     Route: 048

REACTIONS (4)
  - Gastric bypass [Unknown]
  - Wrong technique in drug usage process [Unknown]
  - Dysgeusia [Unknown]
  - Nausea [Unknown]
